FAERS Safety Report 24677013 (Version 1)
Quarter: 2024Q4

REPORT INFORMATION
  Report Type: Spontaneous
  Country: US (occurrence: US)
  Receive Date: 20241128
  Receipt Date: 20241128
  Transmission Date: 20250115
  Serious: No
  Sender: STRIDES
  Company Number: US-STRIDES ARCOLAB LIMITED-2024SP005735

PATIENT
  Age: 39 Year
  Sex: Male

DRUGS (21)
  1. IMIPRAMINE HYDROCHLORIDE [Suspect]
     Active Substance: IMIPRAMINE HYDROCHLORIDE
     Indication: Painful erection
     Dosage: UNK
     Route: 065
  2. IMIPRAMINE HYDROCHLORIDE [Suspect]
     Active Substance: IMIPRAMINE HYDROCHLORIDE
     Indication: Spontaneous penile erection
  3. IMIPRAMINE HYDROCHLORIDE [Suspect]
     Active Substance: IMIPRAMINE HYDROCHLORIDE
     Indication: Sleep disorder
  4. TADALAFIL [Suspect]
     Active Substance: TADALAFIL
     Indication: Painful erection
     Dosage: UNK
     Route: 065
  5. TADALAFIL [Suspect]
     Active Substance: TADALAFIL
     Indication: Spontaneous penile erection
  6. TADALAFIL [Suspect]
     Active Substance: TADALAFIL
     Indication: Sleep disorder
  7. BACLOFEN [Suspect]
     Active Substance: BACLOFEN
     Indication: Painful erection
     Dosage: UNK
     Route: 065
  8. BACLOFEN [Suspect]
     Active Substance: BACLOFEN
     Indication: Spontaneous penile erection
  9. BACLOFEN [Suspect]
     Active Substance: BACLOFEN
     Indication: Sleep disorder
  10. CLONAZEPAM [Suspect]
     Active Substance: CLONAZEPAM
     Indication: Painful erection
     Dosage: UNK
     Route: 065
  11. CLONAZEPAM [Suspect]
     Active Substance: CLONAZEPAM
     Indication: Spontaneous penile erection
  12. CLONAZEPAM [Suspect]
     Active Substance: CLONAZEPAM
     Indication: Sleep disorder
  13. VITAMIN B [Suspect]
     Active Substance: VITAMIN B
     Indication: Painful erection
     Dosage: UNK
     Route: 065
  14. VITAMIN B [Suspect]
     Active Substance: VITAMIN B
     Indication: Spontaneous penile erection
  15. VITAMIN B [Suspect]
     Active Substance: VITAMIN B
     Indication: Sleep disorder
  16. IRON [Suspect]
     Active Substance: IRON
     Indication: Painful erection
     Dosage: UNK
     Route: 065
  17. IRON [Suspect]
     Active Substance: IRON
     Indication: Spontaneous penile erection
  18. IRON [Suspect]
     Active Substance: IRON
     Indication: Sleep disorder
  19. SELENIUM [Suspect]
     Active Substance: SELENIUM
     Indication: Painful erection
     Dosage: UNK
     Route: 065
  20. SELENIUM [Suspect]
     Active Substance: SELENIUM
     Indication: Spontaneous penile erection
  21. SELENIUM [Suspect]
     Active Substance: SELENIUM
     Indication: Sleep disorder

REACTIONS (4)
  - Therapy partial responder [Unknown]
  - Drug ineffective [Unknown]
  - Drug intolerance [Unknown]
  - Off label use [Unknown]
